FAERS Safety Report 18130616 (Version 1)
Quarter: 2020Q3

REPORT INFORMATION
  Report Type: Spontaneous
  Country: US (occurrence: US)
  Receive Date: 20200810
  Receipt Date: 20200810
  Transmission Date: 20201103
  Serious: Yes (Disabling, Other)
  Sender: FDA-Public Use
  Company Number: US-PURDUE-USA-2020-0160586

PATIENT
  Sex: Male

DRUGS (1)
  1. OXYCONTIN [Suspect]
     Active Substance: OXYCODONE HYDROCHLORIDE
     Indication: ELBOW OPERATION
     Dosage: UNK
     Route: 048
     Dates: start: 200409

REACTIONS (2)
  - Imprisonment [Recovered/Resolved]
  - Drug dependence [Recovering/Resolving]
